FAERS Safety Report 12636251 (Version 1)
Quarter: 2016Q3

REPORT INFORMATION
  Report Type: Spontaneous
  Country: US (occurrence: US)
  Receive Date: 20160809
  Receipt Date: 20160809
  Transmission Date: 20161109
  Serious: No
  Sender: FDA-Public Use
  Company Number: US-ELI_LILLY_AND_COMPANY-US201607008727

PATIENT
  Age: 23 Year
  Sex: Female

DRUGS (7)
  1. ZYPREXA RELPREVV [Suspect]
     Active Substance: OLANZAPINE PAMOATE
     Indication: DELUSIONAL DISORDER, UNSPECIFIED TYPE
     Dosage: 210 MG, 2/M
     Route: 030
     Dates: start: 20160630
  2. ZYPREXA [Suspect]
     Active Substance: OLANZAPINE
     Indication: AFFECTIVE DISORDER
     Dosage: 20 MG, UNKNOWN
     Route: 048
  3. ZYPREXA RELPREVV [Suspect]
     Active Substance: OLANZAPINE PAMOATE
     Indication: AFFECTIVE DISORDER
  4. ZYPREXA RELPREVV [Suspect]
     Active Substance: OLANZAPINE PAMOATE
     Indication: SCHIZOAFFECTIVE DISORDER
  5. ZYPREXA [Suspect]
     Active Substance: OLANZAPINE
     Indication: SCHIZOAFFECTIVE DISORDER
  6. FLUOXETINE [Concomitant]
     Active Substance: FLUOXETINE HYDROCHLORIDE
     Indication: BULIMIA NERVOSA
     Dosage: 60 MG, UNKNOWN
     Route: 065
  7. ZYPREXA [Suspect]
     Active Substance: OLANZAPINE
     Indication: DELUSIONAL DISORDER, UNSPECIFIED TYPE
     Dosage: 10 MG, UNKNOWN
     Route: 048
     Dates: start: 2014, end: 20160630

REACTIONS (6)
  - General physical health deterioration [Unknown]
  - Drug level fluctuating [Unknown]
  - Drug dose omission [Unknown]
  - Drug level decreased [Unknown]
  - Purging [Unknown]
  - Emotional distress [Unknown]
